FAERS Safety Report 5711059-3 (Version None)
Quarter: 2008Q2

REPORT INFORMATION
  Report Type: 
  Country: None (occurrence: None)
  Receive Date: 20080421
  Receipt Date: 20080402
  Transmission Date: 20081010
  Serious: Yes (Other)
  Sender: FDA-Public Use
  Company Number: JP-BRISTOL-MYERS SQUIBB COMPANY-14156459

PATIENT
  Age: 4 Decade
  Sex: Female

DRUGS (8)
  1. GATIFLOXACIN [Suspect]
     Route: 048
  2. LYSOZYME HCL [Concomitant]
     Route: 048
  3. LORNOXICAM [Concomitant]
     Route: 048
  4. TEPRENONE [Concomitant]
     Route: 048
  5. PRAVASTATIN SODIUM [Concomitant]
     Route: 048
  6. GLIMEPIRIDE [Concomitant]
     Route: 048
  7. PIOGLITAZONE HCL [Concomitant]
     Route: 048
  8. ACARBOSE [Concomitant]
     Route: 048

REACTIONS (1)
  - HYPOGLYCAEMIA [None]
